FAERS Safety Report 13748065 (Version 9)
Quarter: 2018Q3

REPORT INFORMATION
  Report Type: Report from Study
  Country: US (occurrence: US)
  Receive Date: 20170713
  Receipt Date: 20180711
  Transmission Date: 20181010
  Serious: Yes (Death, Other)
  Sender: FDA-Public Use
  Company Number: US-BRISTOL-MYERS SQUIBB COMPANY-BMS-2017-057664

PATIENT
  Age: 61 Year
  Sex: Male

DRUGS (2)
  1. IPILIMUMAB [Suspect]
     Active Substance: IPILIMUMAB
     Indication: MALIGNANT MELANOMA
     Route: 042
  2. NIVOLUMAB [Suspect]
     Active Substance: NIVOLUMAB
     Indication: MALIGNANT MELANOMA
     Route: 042

REACTIONS (17)
  - Asthenia [Unknown]
  - Death [Fatal]
  - Cerebrovascular accident [Unknown]
  - Seizure [Unknown]
  - Dizziness [Recovering/Resolving]
  - Respiration abnormal [Unknown]
  - Muscle spasms [Unknown]
  - Malignant neoplasm progression [Unknown]
  - Fatigue [Unknown]
  - Decreased appetite [Unknown]
  - Peripheral swelling [Unknown]
  - Pruritus [Unknown]
  - Central nervous system lesion [Unknown]
  - Brain neoplasm [Unknown]
  - Myalgia [Unknown]
  - Laceration [Unknown]
  - Skin atrophy [Unknown]

NARRATIVE: CASE EVENT DATE: 20170721
